FAERS Safety Report 5643720-3 (Version None)
Quarter: 2008Q1

REPORT INFORMATION
  Report Type: 
  Country: None (occurrence: None)
  Receive Date: 20080226
  Receipt Date: 20080215
  Transmission Date: 20080703
  Serious: Yes (Death, Life-Threatening, Hospitalization, Other)
  Sender: FDA-Public Use
  Company Number: 45407

PATIENT
  Age: 36 Year
  Sex: Male

DRUGS (1)
  1. CYCLOSPORINE [Suspect]
     Indication: LIVER TRANSPLANT

REACTIONS (9)
  - ACUTE RESPIRATORY FAILURE [None]
  - ASCITES [None]
  - CARDIAC ARREST [None]
  - CYTOMEGALOVIRUS INFECTION [None]
  - PANCYTOPENIA [None]
  - PERITONITIS [None]
  - RENAL FAILURE [None]
  - SPLENOMEGALY [None]
  - TOXOPLASMOSIS [None]
